FAERS Safety Report 13883561 (Version 2)
Quarter: 2017Q3

REPORT INFORMATION
  Report Type: Spontaneous
  Country: MX (occurrence: MX)
  Receive Date: 20170819
  Receipt Date: 20170919
  Transmission Date: 20171127
  Serious: Yes (Other)
  Sender: FDA-Public Use
  Company Number: MX-ROCHE-1975942

PATIENT

DRUGS (1)
  1. AVASTIN [Suspect]
     Active Substance: BEVACIZUMAB
     Indication: EYE DISORDER
     Route: 050

REACTIONS (6)
  - Endophthalmitis [Unknown]
  - Vasculitis [Unknown]
  - Intentional product use issue [Unknown]
  - Off label use [Unknown]
  - Counterfeit drug administered [Unknown]
  - Transmission of an infectious agent via product [Unknown]
